FAERS Safety Report 14594439 (Version 1)
Quarter: 2018Q1

REPORT INFORMATION
  Report Type: Report from Study
  Country: US (occurrence: US)
  Receive Date: 20180302
  Receipt Date: 20180302
  Transmission Date: 20180509
  Serious: No
  Sender: FDA-Public Use
  Company Number: US-AMGEN-USASL2017132873

PATIENT
  Age: 46 Year
  Sex: Female

DRUGS (2)
  1. SENSIPAR [Suspect]
     Active Substance: CINACALCET HYDROCHLORIDE
     Indication: PRODUCT USED FOR UNKNOWN INDICATION
     Dosage: 30 MG,
     Route: 048
  2. SENSIPAR [Suspect]
     Active Substance: CINACALCET HYDROCHLORIDE
     Dosage: 60 MG,
     Route: 048

REACTIONS (6)
  - Nausea [Unknown]
  - Feeling hot [Unknown]
  - Restlessness [Unknown]
  - Hyperhidrosis [Unknown]
  - Visual impairment [Unknown]
  - Dizziness [Unknown]
